FAERS Safety Report 17657711 (Version 1)
Quarter: 2020Q2

REPORT INFORMATION
  Report Type: Spontaneous
  Country: US (occurrence: US)
  Receive Date: 20200411
  Receipt Date: 20200411
  Transmission Date: 20200713
  Serious: Yes (Other)
  Sender: FDA-Public Use
  Company Number: US-GYP-000120

PATIENT

DRUGS (1)
  1. PREDNISONE. [Suspect]
     Active Substance: PREDNISONE
     Indication: PRODUCT USED FOR UNKNOWN INDICATION
     Route: 065

REACTIONS (9)
  - Face injury [Unknown]
  - Hand fracture [Unknown]
  - Cough [Unknown]
  - Disease recurrence [Unknown]
  - Drug hypersensitivity [Unknown]
  - Dehydration [Unknown]
  - Malaise [Unknown]
  - Rib fracture [Unknown]
  - Wrist fracture [Unknown]
